FAERS Safety Report 23099112 (Version 1)
Quarter: 2023Q4

REPORT INFORMATION
  Report Type: Other
  Country: US (occurrence: None)
  Receive Date: 20231024
  Receipt Date: 20231024
  Transmission Date: 20240110
  Serious: Yes (Other)
  Sender: FDA-Public Use
  Company Number: US-ROCHE-3440157

PATIENT
  Age: 64 Year
  Sex: Female
  Weight: 95 kg

DRUGS (13)
  1. OCREVUS [Suspect]
     Active Substance: OCRELIZUMAB
     Indication: Relapsing multiple sclerosis
     Dosage: DATE OF MOST RECENT INFUSION : 28/APR/2022
     Route: 042
     Dates: start: 20230418
  2. TECFIDERA [Concomitant]
     Active Substance: DIMETHYL FUMARATE
  3. PROVIGIL [Concomitant]
     Active Substance: MODAFINIL
  4. NALTREXONE [Concomitant]
     Active Substance: NALTREXONE
  5. BUPROPION [Concomitant]
     Active Substance: BUPROPION
  6. TRILEPTAL [Concomitant]
     Active Substance: OXCARBAZEPINE
  7. ADVAIR HFA [Concomitant]
     Active Substance: FLUTICASONE PROPIONATE\SALMETEROL XINAFOATE
  8. LIPITOR [Concomitant]
     Active Substance: ATORVASTATIN CALCIUM
  9. LIORESAL [Concomitant]
     Active Substance: BACLOFEN
  10. ALBUTEROL SULFATE [Concomitant]
     Active Substance: ALBUTEROL SULFATE
  11. ENALAPRIL [Concomitant]
     Active Substance: ENALAPRIL
  12. ZANAFLEX [Concomitant]
     Active Substance: TIZANIDINE HYDROCHLORIDE
  13. VITAMIN D3 [Concomitant]
     Active Substance: CHOLECALCIFEROL

REACTIONS (3)
  - Pneumonia [Recovered/Resolved]
  - Hiatus hernia [Unknown]
  - Hepatic steatosis [Unknown]
